FAERS Safety Report 4817049-7 (Version None)
Quarter: 2005Q4

REPORT INFORMATION
  Report Type: 
  Country: None (occurrence: None)
  Receive Date: 20051101
  Receipt Date: 20051024
  Transmission Date: 20060501
  Serious: Yes (Death)
  Sender: FDA-Public Use
  Company Number: GB-GLAXOSMITHKLINE-B0398801A

PATIENT
  Age: 63 Year
  Sex: Male

DRUGS (13)
  1. SALBUTAMOL [Suspect]
     Dosage: 100MCG PER DAY
     Route: 055
  2. SERETIDE [Suspect]
     Dosage: 500UNIT PER DAY
  3. SPIRIVA [Suspect]
     Indication: CHRONIC OBSTRUCTIVE PULMONARY DISEASE
     Dosage: 18MCG PER DAY
     Route: 055
  4. BUMETANIDE [Suspect]
     Dosage: 1MG PER DAY
  5. HUMALOG [Suspect]
     Dosage: 100IUML PER DAY
  6. FOSAMAX [Suspect]
     Dosage: 70MG SINGLE DOSE
  7. HUMULIN [Suspect]
     Dosage: 100UNIT PER DAY
  8. HUMULIN M3 [Suspect]
     Dosage: 100IU PER DAY
  9. LISINOPRIL [Suspect]
     Dosage: 10MG PER DAY
  10. MONTELUKAST [Suspect]
     Dosage: 10MG PER DAY
  11. NYSTATIN [Suspect]
     Dosage: 100000UNIT PER DAY
  12. ACETAMINOPHEN [Suspect]
     Dosage: 500MG PER DAY
  13. TRAMADOL [Suspect]
     Dosage: 50MG PER DAY

REACTIONS (1)
  - LOBAR PNEUMONIA [None]
